FAERS Safety Report 7288776-X (Version None)
Quarter: 2011Q1

REPORT INFORMATION
  Report Type: 
  Country: None (occurrence: None)
  Receive Date: 20110211
  Receipt Date: 20110131
  Transmission Date: 20110831
  Serious: Yes (Hospitalization)
  Sender: FDA-Public Use
  Company Number: JP-JNJFOC-20101007822

PATIENT
  Sex: Female
  Weight: 56 kg

DRUGS (16)
  1. QVAR 40 [Concomitant]
     Indication: HYPERSENSITIVITY
     Route: 055
  2. SODIUM GUALENATE [Concomitant]
     Indication: PROPHYLAXIS
     Route: 049
  3. GOLIMUMAB [Suspect]
     Indication: RHEUMATOID ARTHRITIS
     Route: 058
  4. HYPEN [Concomitant]
     Indication: RHEUMATOID ARTHRITIS
     Route: 048
  5. PREDNISONE [Concomitant]
     Indication: RHEUMATOID ARTHRITIS
     Route: 048
  6. THEO-DUR [Concomitant]
     Indication: HYPERSENSITIVITY
     Route: 048
  7. JUVELA N [Concomitant]
     Indication: BACK PAIN
     Route: 048
  8. METHOTREXATE [Concomitant]
     Indication: RHEUMATOID ARTHRITIS
     Route: 048
  9. SODIUM HYALURONATE [Concomitant]
     Indication: DRY EYE
     Route: 047
  10. ZANTAC [Concomitant]
     Indication: GASTRITIS
     Route: 048
  11. MAGMITT [Concomitant]
     Indication: CONSTIPATION
     Route: 048
  12. ADETPHOS [Concomitant]
     Indication: TINNITUS
     Route: 048
  13. METHYCOBAL [Concomitant]
     Indication: TINNITUS
     Route: 048
  14. OPALMON [Concomitant]
     Indication: BACK PAIN
     Route: 048
  15. GASTROM [Concomitant]
     Indication: GASTRITIS
     Route: 048
  16. FOLIAMIN [Concomitant]
     Indication: UNEVALUABLE EVENT
     Route: 048

REACTIONS (1)
  - HERPES ZOSTER [None]
